FAERS Safety Report 7371714-9 (Version None)
Quarter: 2011Q1

REPORT INFORMATION
  Report Type: 
  Country: None (occurrence: None)
  Receive Date: 20110324
  Receipt Date: 20110311
  Transmission Date: 20110831
  Serious: Yes (Other)
  Sender: FDA-Public Use
  Company Number: PHHY2010BR64631

PATIENT
  Sex: Female

DRUGS (1)
  1. ACLASTA [Suspect]
     Dosage: 5MG/100ML

REACTIONS (4)
  - ABDOMINAL DISCOMFORT [None]
  - DEPRESSION [None]
  - HEAD DISCOMFORT [None]
  - BONE PAIN [None]
